FAERS Safety Report 8387616-5 (Version None)
Quarter: 2012Q2

REPORT INFORMATION
  Report Type: 
  Country: None (occurrence: None)
  Receive Date: 20120525
  Receipt Date: 20120515
  Transmission Date: 20120825
  Serious: Yes (Hospitalization)
  Sender: FDA-Public Use
  Company Number: US-BRISTOL-MYERS SQUIBB COMPANY-16425696

PATIENT
  Age: 63 Year
  Sex: Male

DRUGS (6)
  1. ECONAZOLE NITRATE [Concomitant]
     Dosage: FORMULATION-1%CREAM
     Route: 061
     Dates: start: 20060825
  2. RITONAVIR [Suspect]
     Indication: HIV INFECTION
     Route: 048
     Dates: start: 20120106
  3. TENOFOVIR DISOPROXIL FUMARATE [Suspect]
     Indication: HIV INFECTION
     Route: 048
     Dates: start: 20120106
  4. FLUCONAZOLE [Concomitant]
     Dates: start: 20111116
  5. RALTEGRAVIR [Suspect]
     Indication: HIV INFECTION
     Route: 048
     Dates: start: 20120106
  6. ATAZANAVIR [Suspect]
     Indication: HIV INFECTION
     Route: 048
     Dates: start: 20120106

REACTIONS (1)
  - PNEUMONIA [None]
